FAERS Safety Report 17686888 (Version 1)
Quarter: 2020Q2

REPORT INFORMATION
  Report Type: Spontaneous
  Country: US (occurrence: US)
  Receive Date: 20200421
  Receipt Date: 20200421
  Transmission Date: 20200714
  Serious: No
  Sender: FDA-Public Use
  Company Number: US-009507513-2004USA005305

PATIENT
  Age: 53 Year
  Sex: Male
  Weight: 117.9 kg

DRUGS (3)
  1. PRINIVIL [Suspect]
     Active Substance: LISINOPRIL
     Indication: STRESS
     Dosage: 10 MILLIGRAM
     Route: 048
     Dates: start: 2005
  2. PRINIVIL [Suspect]
     Active Substance: LISINOPRIL
     Indication: INJURY
     Dosage: 20 MILLIGRAM
     Route: 048
  3. PRINIVIL [Suspect]
     Active Substance: LISINOPRIL
     Dosage: UNK

REACTIONS (1)
  - Product use in unapproved indication [Unknown]
